FAERS Safety Report 23055282 (Version 4)
Quarter: 2023Q4

REPORT INFORMATION
  Report Type: Report from Study
  Country: DK (occurrence: DK)
  Receive Date: 20231011
  Receipt Date: 20231031
  Transmission Date: 20240110
  Serious: Yes (Hospitalization)
  Sender: FDA-Public Use
  Company Number: DK-GENMAB-2023-01844

PATIENT
  Age: 58 Year
  Sex: Male

DRUGS (12)
  1. EPCORITAMAB [Suspect]
     Active Substance: EPCORITAMAB
     Indication: Diffuse large B-cell lymphoma
     Dosage: PRIMING DOSE, DOSE: C1, D1  FREQUENCY: TOTAL
     Route: 058
     Dates: start: 20230921, end: 20230921
  2. EPCORITAMAB [Suspect]
     Active Substance: EPCORITAMAB
     Dosage: INTERMEDIATE DOSE, DOSE: C1, D8  FREQUENCY: TOTAL
     Route: 058
     Dates: start: 20230928, end: 20230928
  3. EPCORITAMAB [Suspect]
     Active Substance: EPCORITAMAB
     Dosage: FULL DOSE, DOSE: C1, D15 +22 FREQUENCY: TOTAL
     Route: 058
     Dates: start: 20231005
  4. VINCRISTINE [Suspect]
     Active Substance: VINCRISTINE
     Indication: Diffuse large B-cell lymphoma
     Dosage: 2 MG, EVERY 3 WEEKS
     Route: 042
     Dates: start: 20230921
  5. RITUXIMAB [Suspect]
     Active Substance: RITUXIMAB
     Indication: Diffuse large B-cell lymphoma
     Dosage: 851 MG, EVERY 3 WEEKS
     Route: 042
     Dates: start: 20230921
  6. CYCLOPHOSPHAMIDE [Suspect]
     Active Substance: CYCLOPHOSPHAMIDE
     Indication: Diffuse large B-cell lymphoma
     Dosage: 1703 MG, EVERY 3 WEEKS
     Route: 042
     Dates: start: 20230921
  7. DOXORUBICIN [Suspect]
     Active Substance: DOXORUBICIN
     Indication: Diffuse large B-cell lymphoma
     Dosage: 114 MG, EVERY 3 WEEKS
     Route: 042
     Dates: start: 20230921
  8. PREDNISONE [Suspect]
     Active Substance: PREDNISONE
     Indication: Diffuse large B-cell lymphoma
     Dosage: DAILY C1-6, DAY 1-5
     Route: 048
     Dates: start: 20230921
  9. CLOPIDOGREL BESILATE [Concomitant]
     Active Substance: CLOPIDOGREL BESILATE
     Indication: Cerebrovascular accident
     Dosage: 75 MG, EVERY 1 DAYS
     Dates: start: 20220804
  10. AMLODIPINE MALEATE [Concomitant]
     Active Substance: AMLODIPINE MALEATE
     Indication: Hypertension
     Dosage: 10 MG, EVERY 1 DAYS
     Dates: start: 20220810
  11. ACYCLOVIR SODIUM [Concomitant]
     Active Substance: ACYCLOVIR SODIUM
     Indication: Infection prophylaxis
     Dosage: 400 MG, 2/DAYS
     Dates: start: 20230921
  12. SULFAMETHOXAZOLE AND TRIMETHOPRIM [Concomitant]
     Active Substance: SULFAMETHOXAZOLE\TRIMETHOPRIM
     Indication: Infection prophylaxis
     Dosage: DOSE: 1 DOSAGE FORM
     Dates: start: 20230921

REACTIONS (1)
  - Cytokine release syndrome [Recovered/Resolved]

NARRATIVE: CASE EVENT DATE: 20231006
